FAERS Safety Report 23890508 (Version 1)
Quarter: 2024Q2

REPORT INFORMATION
  Report Type: Spontaneous
  Country: US (occurrence: None)
  Receive Date: 20240523
  Receipt Date: 20240523
  Transmission Date: 20240715
  Serious: No
  Sender: FDA-Public Use
  Company Number: None

PATIENT
  Sex: 0

DRUGS (1)
  1. ESZOPICLONE [Suspect]
     Active Substance: ESZOPICLONE

REACTIONS (1)
  - Drug effect less than expected [None]
